FAERS Safety Report 17647535 (Version 3)
Quarter: 2020Q2

REPORT INFORMATION
  Report Type: Report from Study
  Country: BR (occurrence: BR)
  Receive Date: 20200408
  Receipt Date: 20200601
  Transmission Date: 20200713
  Serious: Yes (Hospitalization, Other)
  Sender: FDA-Public Use
  Company Number: BR-UCBSA-2020013497

PATIENT
  Sex: Female
  Weight: 78 kg

DRUGS (3)
  1. DIPIRONA [Concomitant]
     Active Substance: METAMIZOLE
     Indication: HEADACHE
  2. CERTOLIZUMAB PEGOL RA [Suspect]
     Active Substance: CERTOLIZUMAB PEGOL
     Dosage: 400 MILLIGRAM, EV 4 WEEKS
     Route: 058
     Dates: end: 20200430
  3. CERTOLIZUMAB PEGOL RA [Suspect]
     Active Substance: CERTOLIZUMAB PEGOL
     Indication: RHEUMATOID ARTHRITIS
     Dosage: 400 MILLIGRAM, EV 2 WEEKS(QOW)
     Route: 058
     Dates: start: 2019

REACTIONS (5)
  - Pyrexia [Recovered/Resolved]
  - Headache [Recovered/Resolved]
  - Tuberculosis [Not Recovered/Not Resolved]
  - Renal pain [Recovered/Resolved]
  - Iodine allergy [Not Recovered/Not Resolved]

NARRATIVE: CASE EVENT DATE: 2019
